FAERS Safety Report 8827293 (Version 2)
Quarter: 2012Q4

REPORT INFORMATION
  Report Type: 
  Country: IT (occurrence: IT)
  Receive Date: 20121008
  Receipt Date: 20121010
  Transmission Date: 20130627
  Serious: Yes (Hospitalization, Other)
  Sender: FDA-Public Use
  Company Number: IT-BRISTOL-MYERS SQUIBB COMPANY-17001041

PATIENT
  Age: 88 Year
  Sex: Male

DRUGS (5)
  1. COUMADIN TABS 5 MG [Suspect]
     Indication: THROMBOSIS PROPHYLAXIS
     Dosage: Interrupted on 07Sep12
     Route: 048
     Dates: start: 20110101
  2. ENALAPRIL MALEATE [Concomitant]
     Indication: HYPERTENSION
  3. NIFEDIPINE [Concomitant]
     Indication: HYPERTENSION
  4. AMIODARONE HCL [Concomitant]
     Indication: SICK SINUS SYNDROME
  5. LASIX [Concomitant]
     Indication: HYPERTENSION

REACTIONS (4)
  - International normalised ratio increased [Recovering/Resolving]
  - Melaena [Recovering/Resolving]
  - Colon cancer [Unknown]
  - Metastases to liver [Unknown]
